FAERS Safety Report 13185264 (Version 2)
Quarter: 2017Q1

REPORT INFORMATION
  Report Type: Spontaneous
  Country: US (occurrence: US)
  Receive Date: 20170203
  Receipt Date: 20170217
  Transmission Date: 20170428
  Serious: Yes (Hospitalization)
  Sender: FDA-Public Use
  Company Number: US-TAIHO ONCOLOGY INC-EU-2017-00157

PATIENT
  Age: 76 Year
  Sex: Male
  Weight: 76.14 kg

DRUGS (1)
  1. LONSURF [Suspect]
     Active Substance: TIPIRACIL HYDROCHLORIDE\TRIFLURIDINE
     Indication: COLON CANCER
     Dosage: CYCLE 1
     Route: 048
     Dates: start: 20170109, end: 20170115

REACTIONS (4)
  - Hyperkalaemia [Unknown]
  - Pain [Unknown]
  - Spinal cord neoplasm [Unknown]
  - Nerve root compression [Unknown]

NARRATIVE: CASE EVENT DATE: 201701
